FAERS Safety Report 8837712 (Version 5)
Quarter: 2013Q2

REPORT INFORMATION
  Report Type: Spontaneous
  Country: US (occurrence: US)
  Receive Date: 20121012
  Receipt Date: 20130626
  Transmission Date: 20140414
  Serious: Yes (Life-Threatening, Disabling, Other)
  Sender: FDA-Public Use
  Company Number: PHEH2012US019702

PATIENT
  Sex: Male

DRUGS (14)
  1. TASIGNA [Suspect]
     Indication: CHRONIC MYELOID LEUKAEMIA
     Dosage: 2 DF, BID
     Route: 048
  2. TASIGNA [Suspect]
     Dosage: 1 DF, BID
     Route: 048
     Dates: end: 201211
  3. HUMALOG [Concomitant]
     Indication: DIABETES MELLITUS
  4. PRIMIDONE [Concomitant]
     Indication: TREMOR
  5. HYDROCODONE [Concomitant]
     Indication: PAIN
  6. MORPHINE SULFATE [Concomitant]
     Indication: PAIN
  7. LEXAPRO [Concomitant]
  8. LORAZEPAM [Concomitant]
  9. MORPHINE [Concomitant]
  10. ACETAMINOPHEN W/HYDROCODONE [Concomitant]
     Dosage: 650 MG, PRN
  11. HUMULIN R [Concomitant]
  12. HUMULIN-N [Concomitant]
  13. CALCIUM [Concomitant]
     Dosage: 600 MG, DAILY
  14. IRON [Concomitant]
     Dosage: 45 MG, BID

REACTIONS (23)
  - Chronic obstructive pulmonary disease [Not Recovered/Not Resolved]
  - Pulmonary fibrosis [Not Recovered/Not Resolved]
  - Arteriosclerosis [Not Recovered/Not Resolved]
  - Renal haemorrhage [Not Recovered/Not Resolved]
  - Blood urine present [Not Recovered/Not Resolved]
  - Deafness [Unknown]
  - Gingival bleeding [Unknown]
  - Blindness [Not Recovered/Not Resolved]
  - Blood count abnormal [Not Recovered/Not Resolved]
  - Gastrointestinal haemorrhage [Not Recovered/Not Resolved]
  - Headache [Unknown]
  - Alopecia [Not Recovered/Not Resolved]
  - Swelling face [Not Recovered/Not Resolved]
  - Myalgia [Not Recovered/Not Resolved]
  - Arthralgia [Not Recovered/Not Resolved]
  - Fatigue [Not Recovered/Not Resolved]
  - Skin disorder [Unknown]
  - Pain in extremity [Unknown]
  - Body temperature increased [Unknown]
  - Haemoglobin decreased [Unknown]
  - Nausea [Unknown]
  - White blood cell count increased [Unknown]
  - Haematochezia [Unknown]
